FAERS Safety Report 9911313 (Version 1)
Quarter: 2014Q1

REPORT INFORMATION
  Report Type: Spontaneous
  Country: ET (occurrence: ET)
  Receive Date: 20140219
  Receipt Date: 20140219
  Transmission Date: 20141002
  Serious: Yes (Death, Congenital Anomaly)
  Sender: FDA-Public Use
  Company Number: ET-B.I. PHARMACEUTICALS,INC./RIDGEFIELD-2014-BI-06665GD

PATIENT
  Sex: Female
  Weight: 2.1 kg

DRUGS (4)
  1. NEVIRAPINE [Suspect]
     Indication: EXPOSURE DURING PREGNANCY
     Route: 064
  2. EFAVIRENZ [Suspect]
     Indication: EXPOSURE DURING PREGNANCY
     Route: 064
  3. ZIDOVUDINE [Suspect]
     Indication: EXPOSURE DURING PREGNANCY
     Route: 064
  4. LAMIVUDINE [Suspect]
     Indication: EXPOSURE DURING PREGNANCY
     Route: 064

REACTIONS (2)
  - Foetal death [Fatal]
  - Encephalocele [Fatal]
